FAERS Safety Report 21284232 (Version 1)
Quarter: 2022Q3

REPORT INFORMATION
  Report Type: Report from Study
  Country: US (occurrence: US)
  Receive Date: 20220902
  Receipt Date: 20220902
  Transmission Date: 20221027
  Serious: Yes (Other)
  Sender: FDA-Public Use
  Company Number: US-AMGEN-USASL2022149020

PATIENT
  Age: 59 Year
  Sex: Male

DRUGS (1)
  1. ENBREL [Suspect]
     Active Substance: ETANERCEPT
     Indication: Rheumatoid arthritis
     Dosage: 50 MILLIGRAM, QWK
     Route: 065
     Dates: start: 202206

REACTIONS (4)
  - Cellulitis [Unknown]
  - Urticaria [Unknown]
  - Sleep disorder due to general medical condition, insomnia type [Unknown]
  - Scratch [Unknown]

NARRATIVE: CASE EVENT DATE: 20220101
